FAERS Safety Report 5010851-0 (Version None)
Quarter: 2006Q2

REPORT INFORMATION
  Report Type: 
  Country: None (occurrence: None)
  Receive Date: 20060525
  Receipt Date: 20060321
  Transmission Date: 20061013
  Serious: Yes (Disabling)
  Sender: FDA-Public Use
  Company Number: FR-GLAXOSMITHKLINE-B0417185A

PATIENT
  Age: 54 Year
  Sex: Male
  Weight: 65 kg

DRUGS (3)
  1. REQUIP [Suspect]
     Indication: PARKINSON'S DISEASE
     Route: 048
     Dates: start: 20041101, end: 20060301
  2. STALEVO 100 [Concomitant]
     Indication: PARKINSON'S DISEASE
     Dosage: 100MG FOUR TIMES PER DAY
     Route: 048
     Dates: start: 20050401
  3. SELEGILINE HCL [Concomitant]
     Indication: PARKINSON'S DISEASE
     Dosage: 1TAB PER DAY
     Route: 048
     Dates: start: 20050901

REACTIONS (3)
  - EXHIBITIONISM [None]
  - NERVOUS SYSTEM DISORDER [None]
  - PSYCHOMOTOR HYPERACTIVITY [None]
